FAERS Safety Report 19896598 (Version 1)
Quarter: 2021Q3

REPORT INFORMATION
  Report Type: Spontaneous
  Country: SE (occurrence: SE)
  Receive Date: 20210929
  Receipt Date: 20210929
  Transmission Date: 20211014
  Serious: Yes (Hospitalization)
  Sender: FDA-Public Use
  Company Number: SE-MYLANLABS-2021M1066825

PATIENT
  Age: 39 Year
  Sex: Male

DRUGS (5)
  1. SERTRALINE [Suspect]
     Active Substance: SERTRALINE HYDROCHLORIDE
     Indication: PRODUCT USED FOR UNKNOWN INDICATION
     Dosage: 100 MILLIGRAM, QD
     Dates: start: 202104
  2. ZOLPIDEM [Concomitant]
     Active Substance: ZOLPIDEM TARTRATE
     Dosage: 1 DOSAGE FORM, PRN, 1 TABLET AT NIGHT IF NEEDED
  3. QUETIAPINE. [Concomitant]
     Active Substance: QUETIAPINE
     Dosage: 1 DOSAGE FORM, PRN, 1TABLET IF NEEDED (MAXIMUM 6 PCS / DAY)
  4. VOXRA [Concomitant]
     Active Substance: BUPROPION HYDROCHLORIDE
     Dosage: 300 MILLIGRAM, QD
  5. PROPAVAN [Concomitant]
     Active Substance: PROPIOMAZINE
     Dosage: 25 MILLIGRAM, PRN, 1?2 AT NIGHT IF NEEDED

REACTIONS (2)
  - Dizziness [Unknown]
  - Nystagmus [Unknown]

NARRATIVE: CASE EVENT DATE: 20210504
